FAERS Safety Report 5830973-1 (Version None)
Quarter: 2008Q3

REPORT INFORMATION
  Report Type: 
  Country: None (occurrence: None)
  Receive Date: 20080801
  Receipt Date: 20080306
  Transmission Date: 20090109
  Serious: No
  Sender: FDA-Public Use
  Company Number: US-BRISTOL-MYERS SQUIBB COMPANY-14104806

PATIENT
  Sex: Female
  Weight: 191 kg

DRUGS (2)
  1. COUMADIN [Suspect]
  2. LOVENOX [Concomitant]
     Indication: OBESITY

REACTIONS (2)
  - HAEMORRHAGE [None]
  - INTERNATIONAL NORMALISED RATIO DECREASED [None]
